FAERS Safety Report 9040762 (Version 2)
Quarter: 2016Q3

REPORT INFORMATION
  Report Type: Spontaneous
  Country: US (occurrence: US)
  Receive Date: 20130129
  Receipt Date: 20160912
  Transmission Date: 20161109
  Serious: Yes (Hospitalization)
  Sender: FDA-Public Use
  Company Number: US-JNJFOC-20130111675

PATIENT
  Age: 69 Year
  Sex: Male
  Weight: 177.3 kg

DRUGS (25)
  1. NEURONTIN [Suspect]
     Active Substance: GABAPENTIN
     Indication: DIABETIC NEUROPATHY
     Dosage: THRICE A DAY
     Route: 048
     Dates: start: 20120622, end: 20120728
  2. SINGULAIR [Concomitant]
     Active Substance: MONTELUKAST SODIUM
     Indication: RHINITIS ALLERGIC
     Route: 065
     Dates: start: 20100423
  3. HYTRIN [Concomitant]
     Active Substance: TERAZOSIN HYDROCHLORIDE
     Indication: HYPERTENSION
     Route: 065
     Dates: start: 20120524
  4. NAPROXEN. [Suspect]
     Active Substance: NAPROXEN
     Indication: RHEUMATOID ARTHRITIS
     Dosage: THRICE DAILY
     Route: 048
     Dates: start: 20100527, end: 20111220
  5. AMIODARONE [Concomitant]
     Active Substance: AMIODARONE
     Indication: TACHYCARDIA
     Route: 065
     Dates: start: 20100423
  6. SYMBICORT [Concomitant]
     Active Substance: BUDESONIDE\FORMOTEROL FUMARATE DIHYDRATE
     Indication: CHRONIC OBSTRUCTIVE PULMONARY DISEASE
     Route: 065
     Dates: start: 20110128
  7. METOPROLOL. [Concomitant]
     Active Substance: METOPROLOL
     Indication: TACHYCARDIA
     Route: 065
     Dates: start: 20120530
  8. PERCOCET [Concomitant]
     Active Substance: ACETAMINOPHEN\OXYCODONE HYDROCHLORIDE
     Indication: VASCULITIS
     Dosage: 10/325 MG TWICE DAILY
     Route: 065
     Dates: start: 20120613, end: 20120724
  9. ULTRAM [Suspect]
     Active Substance: TRAMADOL HYDROCHLORIDE
     Indication: VASCULITIS
     Dosage: 1-2 TABLETS AS NEEDED, TWICE A DAY.??FROM 25-JUL-2012 TO 28-JUL-2012
     Route: 048
  10. LYRICA [Suspect]
     Active Substance: PREGABALIN
     Indication: DIABETIC NEUROPATHY
     Dosage: TWICE A DAY.??24-JUL-2012 TO 25-JUL-2012
     Route: 048
  11. NEXIUM [Concomitant]
     Active Substance: ESOMEPRAZOLE MAGNESIUM
     Indication: GASTROINTESTINAL DISORDER THERAPY
     Dosage: 20 MG ONCE
     Route: 048
     Dates: start: 20100721, end: 20111220
  12. PERCOCET [Concomitant]
     Active Substance: ACETAMINOPHEN\OXYCODONE HYDROCHLORIDE
     Indication: ARTHRALGIA
     Dosage: 10/325 MG TWICE DAILY
     Route: 065
     Dates: start: 20120613, end: 20120724
  13. ULTRAM [Suspect]
     Active Substance: TRAMADOL HYDROCHLORIDE
     Indication: ARTHRALGIA
     Dosage: 1-2 TABLETS AS NEEDED, TWICE A DAY.??FROM 25-JUL-2012 TO 28-JUL-2012
     Route: 048
  14. IBUPROFEN. [Suspect]
     Active Substance: IBUPROFEN
     Indication: RHEUMATOID ARTHRITIS
     Dosage: THRICE DAILY
     Route: 048
     Dates: start: 20100527, end: 20111220
  15. CELECOXIB. [Suspect]
     Active Substance: CELECOXIB
     Indication: OSTEOARTHRITIS
     Dosage: THRICE DAILY
     Route: 048
     Dates: start: 20100527, end: 20111220
  16. IBUPROFEN. [Suspect]
     Active Substance: IBUPROFEN
     Indication: RHEUMATOID ARTHRITIS
     Dosage: THRICE DAILY
     Route: 048
     Dates: start: 20100527, end: 20111220
  17. CELECOXIB. [Suspect]
     Active Substance: CELECOXIB
     Indication: RHEUMATOID ARTHRITIS
     Dosage: THRICE DAILY
     Route: 048
     Dates: start: 20100527, end: 20111220
  18. NAPROXEN. [Suspect]
     Active Substance: NAPROXEN
     Indication: OSTEOARTHRITIS
     Dosage: THRICE DAILY
     Route: 048
     Dates: start: 20100527, end: 20111220
  19. ALBUTEROL. [Concomitant]
     Active Substance: ALBUTEROL
     Indication: CHRONIC OBSTRUCTIVE PULMONARY DISEASE
     Route: 065
     Dates: start: 20100423
  20. PLETAL [Concomitant]
     Active Substance: CILOSTAZOL
     Indication: CORONARY ARTERY DISEASE
     Route: 065
     Dates: start: 20120524, end: 20120728
  21. PERCOCET [Concomitant]
     Active Substance: ACETAMINOPHEN\OXYCODONE HYDROCHLORIDE
     Indication: NEUROPATHY PERIPHERAL
     Dosage: 10/325 MG TWICE DAILY
     Route: 065
     Dates: start: 20120613, end: 20120724
  22. IBUPROFEN. [Suspect]
     Active Substance: IBUPROFEN
     Indication: OSTEOARTHRITIS
     Dosage: THRICE DAILY
     Route: 048
     Dates: start: 20100527, end: 20111220
  23. NEURONTIN [Suspect]
     Active Substance: GABAPENTIN
     Indication: NEUROPATHY PERIPHERAL
     Dosage: THRICE A DAY
     Route: 048
     Dates: start: 20120622, end: 20120728
  24. IBUPROFEN. [Suspect]
     Active Substance: IBUPROFEN
     Indication: OSTEOARTHRITIS
     Dosage: THRICE DAILY
     Route: 048
     Dates: start: 20100527, end: 20111220
  25. ULTRAM [Suspect]
     Active Substance: TRAMADOL HYDROCHLORIDE
     Indication: NEUROPATHY PERIPHERAL
     Dosage: 1-2 TABLETS AS NEEDED, TWICE A DAY.??FROM 25-JUL-2012 TO 28-JUL-2012
     Route: 048

REACTIONS (2)
  - Dehydration [Unknown]
  - Asthenia [Recovered/Resolved]

NARRATIVE: CASE EVENT DATE: 20120622
